FAERS Safety Report 15154194 (Version 1)
Quarter: 2018Q3

REPORT INFORMATION
  Report Type: Spontaneous
  Country: SE (occurrence: SE)
  Receive Date: 20180717
  Receipt Date: 20180717
  Transmission Date: 20181010
  Serious: Yes (Hospitalization)
  Sender: FDA-Public Use
  Company Number: SE-PFIZER INC-2018279392

PATIENT
  Age: 22 Year
  Sex: Female

DRUGS (3)
  1. CYTOTEC [Suspect]
     Active Substance: MISOPROSTOL
     Indication: ABORTION INDUCED
     Dosage: 3 DF, UNK
     Dates: start: 20180516, end: 20180516
  2. MIFEGYNE [Interacting]
     Active Substance: MIFEPRISTONE
     Indication: ABORTION INDUCED
     Dosage: 200 MG, UNK
     Dates: start: 20180516, end: 20180516
  3. PRONAXEN [Interacting]
     Active Substance: NAPROXEN
     Indication: ABORTION INDUCED
     Dosage: UNK
     Dates: start: 20180516, end: 20180516

REACTIONS (2)
  - Acute kidney injury [Not Recovered/Not Resolved]
  - Drug interaction [Not Recovered/Not Resolved]

NARRATIVE: CASE EVENT DATE: 20180519
